FAERS Safety Report 7901220-1 (Version None)
Quarter: 2011Q4

REPORT INFORMATION
  Report Type: 
  Country: None (occurrence: None)
  Receive Date: 20111108
  Receipt Date: 20111025
  Transmission Date: 20120403
  Serious: Yes (Other)
  Sender: FDA-Public Use
  Company Number: PHHY2011BR93964

PATIENT
  Sex: Female
  Weight: 82 kg

DRUGS (3)
  1. HORMONES NOS [Concomitant]
  2. SANDOSTATIN LAR [Suspect]
     Indication: ACROMEGALY
     Dosage: UNK UKN, UNK
     Route: 030
  3. METFORMIN HCL [Concomitant]
     Indication: DIABETES MELLITUS
     Dosage: 2 DF, DAILY

REACTIONS (8)
  - HYPOAESTHESIA [None]
  - OSTEOPOROSIS [None]
  - PAIN [None]
  - WEIGHT INCREASED [None]
  - BONE PAIN [None]
  - ARTHROPATHY [None]
  - ABDOMINAL DISCOMFORT [None]
  - HEADACHE [None]
